FAERS Safety Report 8613324-9 (Version None)
Quarter: 2012Q3

REPORT INFORMATION
  Report Type: 
  Country: None (occurrence: None)
  Receive Date: 20120822
  Receipt Date: 20120720
  Transmission Date: 20120928
  Serious: No
  Sender: FDA-Public Use
  Company Number: US-009507513-1204USA01341

PATIENT

DRUGS (2)
  1. AZASITE [Suspect]
     Indication: DRY EYE
  2. AZASITE [Suspect]
     Indication: MEIBOMIAN GLAND DYSFUNCTION
     Dosage: 2 GTT, BID IN BOTH EYES
     Route: 047
     Dates: start: 20120323

REACTIONS (4)
  - DRUG DOSE OMISSION [None]
  - OVERDOSE [None]
  - NO ADVERSE EVENT [None]
  - OFF LABEL USE [None]
